FAERS Safety Report 9511447 (Version 1)
Quarter: 2013Q3

REPORT INFORMATION
  Report Type: Spontaneous
  Country: US (occurrence: US)
  Receive Date: 20130910
  Receipt Date: 20130910
  Transmission Date: 20140515
  Serious: No
  Sender: FDA-Public Use
  Company Number: US-009507513-1308USA009963

PATIENT
  Age: 60 Year
  Sex: Female

DRUGS (3)
  1. DULERA [Suspect]
     Indication: CHRONIC OBSTRUCTIVE PULMONARY DISEASE
     Dosage: 2 PUFFS IN THE MORNING, 2 PUFFS AT NIGHT
     Route: 055
  2. CRESTOR [Concomitant]
  3. DILTIAZEM HYDROCHLORIDE [Concomitant]

REACTIONS (3)
  - Dyspnoea [Not Recovered/Not Resolved]
  - Product distribution issue [Unknown]
  - Drug dose omission [Unknown]
